FAERS Safety Report 9213854 (Version 1)
Quarter: 2013Q2

REPORT INFORMATION
  Report Type: Report from Study
  Country: CA (occurrence: CA)
  Receive Date: 20130405
  Receipt Date: 20130405
  Transmission Date: 20140414
  Serious: Yes (Hospitalization)
  Sender: FDA-Public Use
  Company Number: CA-JNJFOC-20130400423

PATIENT
  Age: 37 Year
  Sex: Male
  Weight: 89.81 kg

DRUGS (7)
  1. REMICADE [Suspect]
     Indication: CROHN^S DISEASE
     Route: 042
     Dates: start: 20120125
  2. IMURAN [Concomitant]
     Route: 065
  3. DIVALPROEX [Concomitant]
     Route: 065
  4. TYLENOL 3 [Concomitant]
     Route: 065
  5. LYRICA [Concomitant]
     Route: 065
  6. LORAZEPAM [Concomitant]
     Route: 065
  7. MAXALT [Concomitant]
     Route: 065

REACTIONS (2)
  - Back pain [Not Recovered/Not Resolved]
  - Oropharyngeal pain [Recovering/Resolving]
